FAERS Safety Report 8956123 (Version 2)
Quarter: 2013Q1

REPORT INFORMATION
  Report Type: Report from Study
  Country: US (occurrence: US)
  Receive Date: 20121210
  Receipt Date: 20130131
  Transmission Date: 20140127
  Serious: Yes (Hospitalization)
  Sender: FDA-Public Use
  Company Number: US-PURDUE-USA-2012-0093066

PATIENT
  Sex: Female

DRUGS (2)
  1. OXYCONTIN (NDA 22-272) [Suspect]
     Indication: PAIN
     Dosage: 60 MG, DAILY
     Route: 048
  2. PERCOCET                           /00867901/ [Concomitant]
     Indication: PRODUCT USED FOR UNKNOWN INDICATION
     Dosage: UNK, BID
     Route: 065

REACTIONS (7)
  - Drug withdrawal syndrome [Unknown]
  - Aphagia [Unknown]
  - Tremor [Unknown]
  - Vomiting [Unknown]
  - Insomnia [Unknown]
  - Anxiety [Unknown]
  - Hypertension [Recovered/Resolved]
